FAERS Safety Report 20588986 (Version 5)
Quarter: 2022Q2

REPORT INFORMATION
  Report Type: Spontaneous
  Country: US (occurrence: US)
  Receive Date: 20220314
  Receipt Date: 20220530
  Transmission Date: 20220721
  Serious: Yes (Other)
  Sender: FDA-Public Use
  Company Number: US-GSKCCFUS-Case-01314774_AE-76532

PATIENT
  Sex: Female

DRUGS (1)
  1. ADVAIR DISKUS [Suspect]
     Active Substance: FLUTICASONE PROPIONATE\SALMETEROL XINAFOATE
     Indication: Product used for unknown indication
     Dosage: 1 PUFF(S), BID 100/50 MCG
     Route: 055

REACTIONS (4)
  - Choking [Recovered/Resolved]
  - Sensation of foreign body [Recovered/Resolved]
  - Retching [Recovered/Resolved]
  - Wrong technique in device usage process [Unknown]
